FAERS Safety Report 22340701 (Version 1)
Quarter: 2023Q2

REPORT INFORMATION
  Report Type: Report from Study
  Country: BR (occurrence: BR)
  Receive Date: 20230518
  Receipt Date: 20230518
  Transmission Date: 20230721
  Serious: Yes (Other)
  Sender: FDA-Public Use
  Company Number: BR-TAKEDA-ALL1-2013-01385

PATIENT
  Age: 6 Month
  Sex: Male
  Weight: 7 kg

DRUGS (6)
  1. IDURSULFASE [Suspect]
     Active Substance: IDURSULFASE
     Indication: Mucopolysaccharidosis II
     Dosage: 0.5 MILLIGRAM/KILOGRAM, 1/WEEK
     Route: 042
     Dates: start: 20130114, end: 20150223
  2. IDURSULFASE [Suspect]
     Active Substance: IDURSULFASE
     Dosage: 0.72 MILLIGRAM/KILOGRAM, 1/WEEK
     Route: 042
     Dates: start: 20150302, end: 20160328
  3. DIPHENHYDRAMINE [Concomitant]
     Active Substance: DIPHENHYDRAMINE
     Indication: Urticaria
     Dosage: 7 MG, ONE DOSE
     Route: 041
     Dates: start: 20130225, end: 20130225
  4. DIPHENHYDRAMINE [Concomitant]
     Active Substance: DIPHENHYDRAMINE
     Indication: Antiallergic therapy
     Dosage: UNK
     Route: 042
     Dates: start: 20130114
  5. METHYLPREDNISOLONE [Concomitant]
     Active Substance: METHYLPREDNISOLONE
     Indication: Angioedema
     Dosage: 17 MG, ONE DOSE
     Route: 041
     Dates: start: 20130225, end: 20130225
  6. METHYLPREDNISOLONE [Concomitant]
     Active Substance: METHYLPREDNISOLONE
     Indication: Adrenocortical steroid therapy
     Dosage: UNK
     Route: 042
     Dates: start: 20130114

REACTIONS (5)
  - Angioedema [Recovered/Resolved]
  - Pallor [Recovered/Resolved]
  - Urticaria [Recovered/Resolved]
  - Infusion related reaction [Recovered/Resolved]
  - Product use issue [Recovered/Resolved]

NARRATIVE: CASE EVENT DATE: 20130101
